FAERS Safety Report 24232169 (Version 1)
Quarter: 2024Q3

REPORT INFORMATION
  Report Type: Spontaneous
  Country: CN (occurrence: CN)
  Receive Date: 20240821
  Receipt Date: 20240821
  Transmission Date: 20241016
  Serious: Yes (Other)
  Sender: STRIDES
  Company Number: CN-STRIDES ARCOLAB LIMITED-2024SP010349

PATIENT

DRUGS (2)
  1. PREDNISOLONE [Suspect]
     Active Substance: PREDNISOLONE
     Indication: Peripheral T-cell lymphoma unspecified
     Dosage: UNK, CYCLICAL
     Route: 048
  2. TUCIDINOSTAT [Suspect]
     Active Substance: TUCIDINOSTAT
     Indication: Peripheral T-cell lymphoma unspecified
     Dosage: UNK, CYCLICAL
     Route: 048

REACTIONS (1)
  - Leukopenia [Recovered/Resolved]
